FAERS Safety Report 14150724 (Version 1)
Quarter: 2017Q4

REPORT INFORMATION
  Report Type: Spontaneous
  Country: FR (occurrence: FR)
  Receive Date: 20171102
  Receipt Date: 20171102
  Transmission Date: 20180321
  Serious: Yes (Other)
  Sender: FDA-Public Use
  Company Number: PHHY2017FR153801

PATIENT
  Age: 65 Year
  Sex: Male

DRUGS (3)
  1. ADENURIC [Concomitant]
     Active Substance: FEBUXOSTAT
     Indication: BLOOD URIC ACID ABNORMAL
     Dosage: 80 MG, QD
     Route: 065
  2. MYFORTIC [Suspect]
     Active Substance: MYCOPHENOLATE SODIUM
     Indication: RENAL TRANSPLANT
     Dosage: 360 MG, BID
     Route: 065
     Dates: start: 201705
  3. ALLOPURINOL. [Concomitant]
     Active Substance: ALLOPURINOL
     Indication: PRODUCT USED FOR UNKNOWN INDICATION
     Dosage: UNK
     Route: 065
     Dates: end: 2017

REACTIONS (3)
  - Arthralgia [Unknown]
  - Gait disturbance [Unknown]
  - Gout [Not Recovered/Not Resolved]

NARRATIVE: CASE EVENT DATE: 20171012
